FAERS Safety Report 4709238-7 (Version None)
Quarter: 2005Q3

REPORT INFORMATION
  Report Type: 
  Country: None (occurrence: None)
  Receive Date: 20050705
  Receipt Date: 20050621
  Transmission Date: 20060218
  Serious: Yes (Hospitalization)
  Sender: FDA-Public Use
  Company Number: 2005SP001485

PATIENT
  Sex: Female

DRUGS (2)
  1. LUNESTA [Suspect]
     Dosage: ORAL
     Route: 048
     Dates: start: 20050101
  2. AMBIEN [Suspect]
     Dosage: ORAL
     Route: 048
     Dates: start: 20050101

REACTIONS (2)
  - ABNORMAL BEHAVIOUR [None]
  - DELUSION [None]
